FAERS Safety Report 5288080-5 (Version None)
Quarter: 2007Q2

REPORT INFORMATION
  Report Type: 
  Country: None (occurrence: None)
  Receive Date: 20070402
  Receipt Date: 20070402
  Transmission Date: 20071010
  Serious: No
  Sender: FDA-Public Use
  Company Number: None

PATIENT
  Sex: Female
  Weight: 53.978 kg

DRUGS (2)
  1. FOSAMAX [Suspect]
     Indication: OSTEOPENIA
     Dosage: 70 MG PER WEEK PO
     Route: 048
     Dates: start: 19950101, end: 20070310
  2. FOSAMAX [Suspect]
     Indication: OSTEOPENIA
     Dosage: 10 MG DAILY PO
     Route: 048

REACTIONS (6)
  - ACTIVITIES OF DAILY LIVING IMPAIRED [None]
  - COUGH [None]
  - FRACTURE DELAYED UNION [None]
  - MUSCULOSKELETAL CHEST PAIN [None]
  - RIB FRACTURE [None]
  - SLEEP DISORDER [None]
